FAERS Safety Report 4433066-3 (Version None)
Quarter: 2004Q3

REPORT INFORMATION
  Report Type: 
  Country: None (occurrence: None)
  Receive Date: 20040823
  Receipt Date: 20040819
  Transmission Date: 20050211
  Serious: Yes (Death, Hospitalization)
  Sender: FDA-Public Use
  Company Number: US-SHR-03-018982

PATIENT
  Sex: Male

DRUGS (1)
  1. CAMPATH [Suspect]
     Indication: CHRONIC LYMPHOCYTIC LEUKAEMIA
     Dosage: 3X /WEEK, SUBCUTANEOUS
     Route: 058
     Dates: start: 20030701, end: 20031101

REACTIONS (4)
  - ARTHRALGIA [None]
  - BACK PAIN [None]
  - NECROTISING FASCIITIS [None]
  - PAIN IN EXTREMITY [None]
